FAERS Safety Report 24888401 (Version 2)
Quarter: 2025Q1

REPORT INFORMATION
  Report Type: Spontaneous
  Country: JP (occurrence: JP)
  Receive Date: 20250127
  Receipt Date: 20250216
  Transmission Date: 20250408
  Serious: Yes (Death, Hospitalization)
  Sender: ARDELYX
  Company Number: JP-ARDELYX-2025ARDX000340

PATIENT
  Age: 9 Decade
  Sex: Male

DRUGS (4)
  1. TENAPANOR HYDROCHLORIDE [Suspect]
     Active Substance: TENAPANOR HYDROCHLORIDE
     Indication: Hyperphosphataemia
     Route: 048
     Dates: start: 202408
  2. AMITIZA [Concomitant]
     Active Substance: LUBIPROSTONE
     Indication: Product used for unknown indication
     Route: 065
  3. ELOBIXIBAT [Concomitant]
     Active Substance: ELOBIXIBAT
     Indication: Product used for unknown indication
     Route: 065
  4. LANTHANUM CARBONATE [Concomitant]
     Active Substance: LANTHANUM CARBONATE
     Indication: Product used for unknown indication
     Route: 065

REACTIONS (4)
  - Gastroenteritis [Fatal]
  - Feeding disorder [Fatal]
  - Asthenia [Fatal]
  - Steal syndrome [Unknown]

NARRATIVE: CASE EVENT DATE: 20241201
